FAERS Safety Report 4778565-X (Version None)
Quarter: 2005Q3

REPORT INFORMATION
  Report Type: 
  Country: None (occurrence: None)
  Receive Date: 20050922
  Receipt Date: 20050909
  Transmission Date: 20060218
  Serious: Yes (Hospitalization, Disabling)
  Sender: FDA-Public Use
  Company Number: 2005097783

PATIENT
  Age: 18 Year
  Sex: Female

DRUGS (4)
  1. CLINDAMYCIN PHOSPHATE [Suspect]
     Indication: PHARYNGITIS
     Dates: start: 20041201
  2. CLINDAMYCIN PHOSPHATE [Suspect]
     Indication: SINUSITIS
     Dates: start: 20041201
  3. CLINDAMYCIN PHOSPHATE [Suspect]
     Indication: TONSILLITIS
     Dates: start: 20041201
  4. CONTRACEPTIVE, (CONTRACEPTIVE,) [Concomitant]

REACTIONS (14)
  - CHOKING [None]
  - COORDINATION ABNORMAL [None]
  - DYSARTHRIA [None]
  - DYSPHAGIA [None]
  - DYSPNOEA [None]
  - GAIT DISTURBANCE [None]
  - HYPOAESTHESIA [None]
  - METABOLIC DISORDER [None]
  - MUSCLE DISORDER [None]
  - MUSCLE SPASTICITY [None]
  - MYASTHENIC SYNDROME [None]
  - SENSATION OF HEAVINESS [None]
  - SPEECH DISORDER [None]
  - VISUAL DISTURBANCE [None]
